FAERS Safety Report 12447190 (Version 1)
Quarter: 2016Q2

REPORT INFORMATION
  Report Type: Spontaneous
  Country: FR (occurrence: FR)
  Receive Date: 20160608
  Receipt Date: 20160608
  Transmission Date: 20160815
  Serious: Yes (Hospitalization)
  Sender: FDA-Public Use
  Company Number: FR-009507513-1606FRA002133

PATIENT
  Age: 82 Year
  Sex: Male

DRUGS (4)
  1. BACTRIM [Suspect]
     Active Substance: SULFAMETHOXAZOLE\TRIMETHOPRIM
     Dosage: 1 DF, TIW
     Route: 048
     Dates: start: 20160310, end: 20160401
  2. CORDARONE [Suspect]
     Active Substance: AMIODARONE HYDROCHLORIDE
     Dosage: 200 MG, 5 X PER WEEK(5 TIMES PER WEEK)
     Route: 048
     Dates: start: 2013
  3. NOXAFIL [Suspect]
     Active Substance: POSACONAZOLE
     Dosage: 100 MG, TID
     Route: 048
     Dates: start: 20160310, end: 20160401
  4. NEBILOX [Suspect]
     Active Substance: NEBIVOLOL HYDROCHLORIDE
     Dosage: 5 MG, QD
     Route: 048
     Dates: start: 2013, end: 20160401

REACTIONS (1)
  - Bradycardia [Recovered/Resolved]

NARRATIVE: CASE EVENT DATE: 20160401
